FAERS Safety Report 7986051-9 (Version None)
Quarter: 2011Q4

REPORT INFORMATION
  Report Type: 
  Country: None (occurrence: None)
  Receive Date: 20111216
  Receipt Date: 20110107
  Transmission Date: 20120403
  Serious: No
  Sender: FDA-Public Use
  Company Number: US-BRISTOL-MYERS SQUIBB COMPANY-15476963

PATIENT
  Age: 4 Decade
  Sex: Female

DRUGS (4)
  1. AMBIEN [Concomitant]
  2. LAMICTAL [Concomitant]
  3. ABILIFY [Suspect]
  4. LEXAPRO [Concomitant]

REACTIONS (1)
  - TARDIVE DYSKINESIA [None]
